FAERS Safety Report 9882963 (Version 1)
Quarter: 2014Q1

REPORT INFORMATION
  Report Type: Spontaneous
  Country: US (occurrence: None)
  Receive Date: 20140205
  Receipt Date: 20140205
  Transmission Date: 20141002
  Serious: Yes (Other)
  Sender: FDA-Public Use
  Company Number: 2010S1000568

PATIENT
  Age: 57 Year
  Sex: Male
  Weight: 88.91 kg

DRUGS (1)
  1. FLEET PHOSPHO-SODA [Suspect]
     Indication: COLONOSCOPY
     Route: 048
     Dates: start: 20070704

REACTIONS (6)
  - Secondary hypertension [None]
  - Groin pain [None]
  - Inguinal hernia [None]
  - Renal failure [None]
  - Renal failure chronic [None]
  - Renal failure acute [None]
